FAERS Safety Report 9145954 (Version 1)
Quarter: 2013Q1

REPORT INFORMATION
  Report Type: Spontaneous
  Country: FR (occurrence: FR)
  Receive Date: 20130307
  Receipt Date: 20130307
  Transmission Date: 20140127
  Serious: Yes (Hospitalization, Other)
  Sender: FDA-Public Use
  Company Number: FR-ELI_LILLY_AND_COMPANY-FR201302008559

PATIENT
  Sex: Female

DRUGS (7)
  1. PROZAC [Suspect]
     Dosage: 20 MG, QD
     Route: 048
     Dates: start: 2004
  2. ENGERIX-B [Concomitant]
     Dosage: UNK
     Dates: start: 201201, end: 201207
  3. ALDACTAZINE [Concomitant]
     Dosage: 1 DF, QD
     Dates: start: 2004
  4. APROVEL [Concomitant]
     Dosage: 75 MG, QD
     Dates: start: 20121114
  5. DIFFU K [Concomitant]
     Dosage: 1 DF, UNKNOWN
     Dates: start: 201206
  6. SPRYCEL [Concomitant]
     Indication: CHRONIC MYELOID LEUKAEMIA
     Dosage: 50 MG, BID
     Dates: start: 20070701
  7. INTERFERON [Concomitant]
     Indication: CHRONIC MYELOID LEUKAEMIA
     Dosage: 1 DF, UNKNOWN
     Dates: start: 200405, end: 200701

REACTIONS (4)
  - Systemic lupus erythematosus [Not Recovered/Not Resolved]
  - Glomerulonephritis membranoproliferative [Not Recovered/Not Resolved]
  - Vitamin D deficiency [Unknown]
  - Rash [Unknown]
